FAERS Safety Report 9411499 (Version 1)
Quarter: 2013Q3

REPORT INFORMATION
  Report Type: Spontaneous
  Country: US (occurrence: None)
  Receive Date: 20130718
  Receipt Date: 20130718
  Transmission Date: 20140515
  Serious: Yes (Hospitalization)
  Sender: FDA-Public Use
  Company Number: None

PATIENT
  Age: 82 Year
  Sex: Female
  Weight: 105.1 kg

DRUGS (2)
  1. CARDIZEM [Suspect]
     Indication: ATRIAL FIBRILLATION
     Route: 042
     Dates: start: 20130703
  2. CARDIZEM [Suspect]
     Route: 048
     Dates: start: 20130704, end: 20130705

REACTIONS (5)
  - Rash maculo-papular [None]
  - Rash erythematous [None]
  - Blood creatinine increased [None]
  - Nephritis allergic [None]
  - Petechiae [None]
